FAERS Safety Report 21677748 (Version 1)
Quarter: 2022Q4

REPORT INFORMATION
  Report Type: Report from Study
  Country: ZA (occurrence: ZA)
  Receive Date: 20221203
  Receipt Date: 20221203
  Transmission Date: 20230112
  Serious: Yes (Other)
  Sender: FDA-Public Use
  Company Number: ZA-002147023-NVSC2022ZA123324

PATIENT
  Age: 61 Year
  Sex: Male

DRUGS (2)
  1. SIPONIMOD [Suspect]
     Active Substance: SIPONIMOD
     Indication: Secondary progressive multiple sclerosis
     Dosage: 0.25 MG, QD (TITRATION PACK DAY 2)
     Route: 048
     Dates: start: 20220525
  2. SIPONIMOD [Suspect]
     Active Substance: SIPONIMOD
     Dosage: 2 MG, QD
     Route: 048

REACTIONS (5)
  - Gait disturbance [Recovering/Resolving]
  - Initial insomnia [Unknown]
  - Headache [Recovered/Resolved]
  - Dizziness [Recovered/Resolved]
  - Fatigue [Unknown]

NARRATIVE: CASE EVENT DATE: 20220525
